FAERS Safety Report 19884388 (Version 1)
Quarter: 2021Q3

REPORT INFORMATION
  Report Type: Spontaneous
  Country: US (occurrence: US)
  Receive Date: 20210926
  Receipt Date: 20210926
  Transmission Date: 20211014
  Serious: Yes (Life-Threatening, Other)
  Sender: FDA-Public Use
  Company Number: None

PATIENT
  Age: 17 Year
  Sex: Male
  Weight: 76.5 kg

DRUGS (4)
  1. OLANZAPINE. [Suspect]
     Active Substance: OLANZAPINE
     Indication: SCHIZOPHRENIA
     Dosage: ?          QUANTITY:2 TABLET(S);?
     Route: 048
  2. LITHIUM. [Suspect]
     Active Substance: LITHIUM
  3. OLANZAPINE. [Suspect]
     Active Substance: OLANZAPINE
     Indication: BIPOLAR I DISORDER
     Dosage: ?          QUANTITY:2 TABLET(S);?
     Route: 048
  4. ZYPREXA [Concomitant]
     Active Substance: OLANZAPINE

REACTIONS (14)
  - Dysphonia [None]
  - Dyskinesia [None]
  - Restlessness [None]
  - Tremor [None]
  - Musculoskeletal stiffness [None]
  - Grimacing [None]
  - Memory impairment [None]
  - Dysarthria [None]
  - Visual impairment [None]
  - Excessive eye blinking [None]
  - Product use complaint [None]
  - Loss of personal independence in daily activities [None]
  - Dizziness [None]
  - Nausea [None]
